FAERS Safety Report 12407460 (Version 2)
Quarter: 2016Q3

REPORT INFORMATION
  Report Type: Spontaneous
  Country: US (occurrence: US)
  Receive Date: 20160526
  Receipt Date: 20160725
  Transmission Date: 20161109
  Serious: No
  Sender: FDA-Public Use
  Company Number: US-PFIZER INC-2016228284

PATIENT
  Age: 56 Year
  Sex: Female

DRUGS (1)
  1. FLECTOR [Suspect]
     Active Substance: DICLOFENAC EPOLAMINE
     Indication: JOINT INJURY
     Dosage: UNK, 2X/DAY (1.3% PATCHES)
     Dates: start: 20160420

REACTIONS (7)
  - Throat tightness [Unknown]
  - Lip blister [Unknown]
  - Paraesthesia oral [Not Recovered/Not Resolved]
  - Headache [Not Recovered/Not Resolved]
  - Head discomfort [Not Recovered/Not Resolved]
  - Dysphagia [Unknown]
  - Nasal oedema [Unknown]

NARRATIVE: CASE EVENT DATE: 20160420
